FAERS Safety Report 8465507-9 (Version None)
Quarter: 2012Q2

REPORT INFORMATION
  Report Type: 
  Country: None (occurrence: None)
  Receive Date: 20120626
  Receipt Date: 20120620
  Transmission Date: 20120825
  Serious: Yes (Hospitalization)
  Sender: FDA-Public Use
  Company Number: US-BAYER-2012-062485

PATIENT
  Age: 41 Year
  Sex: Female
  Weight: 54 kg

DRUGS (5)
  1. YAZ [Suspect]
  2. YASMIN [Suspect]
  3. SUPER OMEGA. [Concomitant]
  4. DROSPIRENONE AND ETHINYL ESTRADIOL [Suspect]
  5. VITAMIN D [Concomitant]

REACTIONS (1)
  - DEEP VEIN THROMBOSIS [None]
